FAERS Safety Report 8730171 (Version 2)
Quarter: 2012Q4

REPORT INFORMATION
  Report Type: 
  Country: SI (occurrence: SI)
  Receive Date: 20120817
  Receipt Date: 20120904
  Transmission Date: 20130627
  Serious: Yes (Hospitalization, Other)
  Sender: FDA-Public Use
  Company Number: SI-ACTELION-A-CH2012-69928

PATIENT
  Age: 7 Year
  Sex: Male
  Weight: 44 kg

DRUGS (4)
  1. TRACLEER [Suspect]
     Indication: PORTOPULMONARY HYPERTENSION
     Dosage: 62.5 mg, bid
     Route: 048
     Dates: start: 20070320, end: 20120617
  2. TRACLEER [Suspect]
     Dosage: 31.25 mg, bid
     Route: 048
     Dates: start: 20070220, end: 20070319
  3. PROGRAFT [Concomitant]
  4. PRIMOTREN [Concomitant]

REACTIONS (7)
  - Hepatotoxicity [Recovered/Resolved]
  - Liver transplant [Recovered/Resolved]
  - Burkitt^s lymphoma [Recovered/Resolved]
  - Liver transplant rejection [Recovered/Resolved]
  - Biopsy liver [Recovered/Resolved]
  - Alanine aminotransferase increased [Recovered/Resolved]
  - Aspartate aminotransferase increased [Recovered/Resolved]
